FAERS Safety Report 15694086 (Version 1)
Quarter: 2018Q4

REPORT INFORMATION
  Report Type: Spontaneous
  Country: US (occurrence: US)
  Receive Date: 20181206
  Receipt Date: 20181206
  Transmission Date: 20190205
  Serious: Yes (Other)
  Sender: FDA-Public Use
  Company Number: US-GLAXOSMITHKLINE-US2018GSK219851

PATIENT
  Age: 43 Year
  Sex: Female

DRUGS (1)
  1. MEPOLIZUMAB [Suspect]
     Active Substance: MEPOLIZUMAB
     Indication: ASTHMA

REACTIONS (10)
  - Cough [Unknown]
  - Respiratory failure [Unknown]
  - Troponin increased [Unknown]
  - Hypereosinophilic syndrome [Unknown]
  - Dyspnoea [Unknown]
  - Acute myocardial infarction [Unknown]
  - Pericardial effusion [Unknown]
  - Pyrexia [Unknown]
  - Atypical pneumonia [Unknown]
  - Eosinophilia [Unknown]
